FAERS Safety Report 10137499 (Version 2)
Quarter: 2015Q1

REPORT INFORMATION
  Report Type: Other
  Country: US (occurrence: US)
  Receive Date: 20140429
  Receipt Date: 20150302
  Transmission Date: 20150720
  Serious: Yes (Hospitalization, Other)
  Sender: FDA-Public Use
  Company Number: US-GSKPPD-2014GSK038407

PATIENT
  Age: 63 Year
  Sex: Male

DRUGS (7)
  1. AVANDIA [Suspect]
     Active Substance: ROSIGLITAZONE MALEATE
     Indication: DIABETES MELLITUS
     Dosage: DATES OF AVANDIA USE COULD NOT BE CONFIRMED IN RECORDS REVIEWED.
     Route: 048
  2. WARFARIN [Concomitant]
     Active Substance: WARFARIN
     Dates: start: 20071214, end: 20071214
  3. METOPROLOL [Concomitant]
     Active Substance: METOPROLOL
     Route: 048
  4. FUROSEMIDE. [Concomitant]
     Active Substance: FUROSEMIDE
     Dosage: FOR 1 WEEK
     Route: 048
     Dates: start: 20071217
  5. AMLODIPINE [Concomitant]
     Active Substance: AMLODIPINE BESYLATE
     Route: 048
  6. ASPIRIN. [Concomitant]
     Active Substance: ASPIRIN
     Route: 048
  7. AMIODARONE [Concomitant]
     Active Substance: AMIODARONE
     Dosage: 800MG FOR 2 WEEKS, THEN 400MG FOR 2 WEEKS, THEN 200MG FOR 2 WEEKS
     Route: 048
     Dates: start: 20071217

REACTIONS (2)
  - Coronary artery disease [Recovered/Resolved]
  - Myocardial infarction [Unknown]

NARRATIVE: CASE EVENT DATE: 20071211
